FAERS Safety Report 12120237 (Version 2)
Quarter: 2016Q2

REPORT INFORMATION
  Report Type: Spontaneous
  Country: DE (occurrence: DE)
  Receive Date: 20160226
  Receipt Date: 20160615
  Transmission Date: 20160815
  Serious: Yes (Hospitalization)
  Sender: FDA-Public Use
  Company Number: DE-PFIZER INC-2016113586

PATIENT
  Age: 55 Year
  Sex: Female
  Weight: 170 kg

DRUGS (3)
  1. GABAPENTIN. [Suspect]
     Active Substance: GABAPENTIN
     Indication: POST HERPETIC NEURALGIA
     Dosage: 300, 3X/DAY
     Route: 048
     Dates: start: 20151226, end: 20160105
  2. NOVAMINSULFON [Concomitant]
     Active Substance: METAMIZOLE
     Indication: POST HERPETIC NEURALGIA
     Dosage: 120 GTT, DAILY, 30 GTT 4XDAY
     Route: 048
     Dates: start: 20160102
  3. TRAMADOL. [Concomitant]
     Active Substance: TRAMADOL
     Indication: POST HERPETIC NEURALGIA
     Dosage: 80 GTT, DAILY, 20 GTT 4XDAY
     Route: 048
     Dates: start: 20151226, end: 20160104

REACTIONS (11)
  - Paraesthesia oral [Recovering/Resolving]
  - Tachycardia [Recovering/Resolving]
  - Anxiety [Recovering/Resolving]
  - Dysphagia [Recovering/Resolving]
  - Hyperventilation [Recovering/Resolving]
  - Dyspnoea [Recovering/Resolving]
  - Eczema [Recovering/Resolving]
  - Paraesthesia [Unknown]
  - Drug intolerance [Recovering/Resolving]
  - Tetany [Recovering/Resolving]
  - Tension [Unknown]

NARRATIVE: CASE EVENT DATE: 20151227
